FAERS Safety Report 20840311 (Version 1)
Quarter: 2022Q2

REPORT INFORMATION
  Report Type: Spontaneous
  Country: US (occurrence: US)
  Receive Date: 20220517
  Receipt Date: 20220517
  Transmission Date: 20220721
  Serious: No
  Sender: FDA-Public Use
  Company Number: US-PFIZER INC-202200655260

PATIENT
  Age: 77 Year
  Sex: Female
  Weight: 95 kg

DRUGS (2)
  1. ZITHROMAX [Suspect]
     Active Substance: AZITHROMYCIN DIHYDRATE
     Indication: Upper respiratory tract infection
     Dosage: 250 MG, 1X/DAY
     Dates: start: 20220428
  2. ZITHROMAX [Suspect]
     Active Substance: AZITHROMYCIN DIHYDRATE
     Indication: Upper respiratory tract congestion

REACTIONS (4)
  - Drug ineffective [Unknown]
  - Colitis [Unknown]
  - Diarrhoea [Unknown]
  - COVID-19 [Unknown]

NARRATIVE: CASE EVENT DATE: 20220428
